FAERS Safety Report 7622404-6 (Version None)
Quarter: 2011Q3

REPORT INFORMATION
  Report Type: 
  Country: None (occurrence: None)
  Receive Date: 20110718
  Receipt Date: 20110718
  Transmission Date: 20111222
  Serious: Yes (Life-Threatening, Hospitalization)
  Sender: FDA-Public Use
  Company Number: None

PATIENT
  Age: 71 Year
  Sex: Female

DRUGS (2)
  1. TACROLIMUS [Suspect]
     Indication: TRANSPLANT
     Dosage: 3 CAPSULES TWICE DAILY
     Dates: start: 20091201
  2. TACROLIMUS [Suspect]

REACTIONS (2)
  - TRANSPLANT REJECTION [None]
  - PRODUCT QUALITY ISSUE [None]
